FAERS Safety Report 8183270-6 (Version None)
Quarter: 2012Q1

REPORT INFORMATION
  Report Type: 
  Country: None (occurrence: None)
  Receive Date: 20120305
  Receipt Date: 20120220
  Transmission Date: 20120608
  Serious: Yes (Other)
  Sender: FDA-Public Use
  Company Number: IT-MYLANLABS-2012S1003758

PATIENT
  Age: 38 Year
  Sex: Female

DRUGS (1)
  1. PANTOPRAZOLE [Suspect]
     Indication: GASTRITIS
     Route: 048
     Dates: start: 20120214, end: 20120217

REACTIONS (1)
  - LIP OEDEMA [None]
